FAERS Safety Report 8472652-0 (Version None)
Quarter: 2012Q2

REPORT INFORMATION
  Report Type: 
  Country: None (occurrence: None)
  Receive Date: 20120627
  Receipt Date: 20120618
  Transmission Date: 20120825
  Serious: Yes (Hospitalization)
  Sender: FDA-Public Use
  Company Number: FR-ASTRAZENECA-2012SE00473

PATIENT
  Age: 10760 Day
  Sex: Female

DRUGS (8)
  1. GADOLINIUM [Concomitant]
     Indication: NUCLEAR MAGNETIC RESONANCE IMAGING
     Dates: start: 20111029
  2. ACETAMINOPHEN [Concomitant]
     Indication: PAIN
     Route: 048
  3. ESTAZOLAM [Suspect]
     Route: 048
     Dates: start: 20111014
  4. RELPAX [Suspect]
     Indication: MIGRAINE
     Route: 048
     Dates: start: 20110909, end: 20111015
  5. PANTOPRAZOLE [Concomitant]
     Route: 048
     Dates: start: 20110802
  6. DIANE [Concomitant]
     Route: 048
  7. ZOLMITRIPTAN [Suspect]
     Indication: MIGRAINE
     Route: 048
     Dates: start: 20111015
  8. LAMICTAL [Suspect]
     Route: 048
     Dates: start: 20111015, end: 20111108

REACTIONS (4)
  - HISTIOCYTOSIS HAEMATOPHAGIC [None]
  - CYTOLYTIC HEPATITIS [None]
  - DISSEMINATED INTRAVASCULAR COAGULATION [None]
  - DRUG RASH WITH EOSINOPHILIA AND SYSTEMIC SYMPTOMS [None]
